FAERS Safety Report 4806637-X (Version None)
Quarter: 2005Q4

REPORT INFORMATION
  Report Type: 
  Country: None (occurrence: None)
  Receive Date: 20051019
  Receipt Date: 20051005
  Transmission Date: 20060501
  Serious: Yes (Other)
  Sender: FDA-Public Use
  Company Number: US_0509122202

PATIENT
  Age: 75 Year
  Sex: Male

DRUGS (6)
  1. CIALIS [Suspect]
     Dosage: 20 MG/2  MONTH
     Dates: start: 20050301
  2. TOPROL-XL [Concomitant]
  3. COUMADIN [Concomitant]
  4. ALLOPURINOL [Concomitant]
  5. LEVITRA [Concomitant]
  6. VIAGRA [Concomitant]

REACTIONS (1)
  - MACULAR DEGENERATION [None]
